FAERS Safety Report 9949404 (Version 1)
Quarter: 2014Q1

REPORT INFORMATION
  Report Type: Spontaneous
  Country: US (occurrence: US)
  Receive Date: 20140304
  Receipt Date: 20140304
  Transmission Date: 20141002
  Serious: No
  Sender: FDA-Public Use
  Company Number: US-PFIZER INC-2014058871

PATIENT
  Sex: Female

DRUGS (1)
  1. CYTOTEC [Suspect]
     Indication: ABORTION INDUCED
     Dosage: 100 UG, SINGLE
     Route: 002

REACTIONS (1)
  - Drug ineffective for unapproved indication [Unknown]
